FAERS Safety Report 16791900 (Version 1)
Quarter: 2019Q3

REPORT INFORMATION
  Report Type: Spontaneous
  Country: US (occurrence: US)
  Receive Date: 20190910
  Receipt Date: 20190910
  Transmission Date: 20191005
  Serious: Yes (Hospitalization, Other)
  Sender: FDA-Public Use
  Company Number: US-INDIVIOR EUROPE LIMITED-INDV-121442-2019

PATIENT
  Age: 56 Year
  Sex: Female

DRUGS (2)
  1. SUBOXONE [Suspect]
     Active Substance: BUPRENORPHINE HYDROCHLORIDE\NALOXONE HYDROCHLORIDE
     Dosage: 8MG, HALF A FILM DAILY
     Route: 060
     Dates: end: 2019
  2. SUBOXONE [Suspect]
     Active Substance: BUPRENORPHINE HYDROCHLORIDE\NALOXONE HYDROCHLORIDE
     Indication: DRUG DEPENDENCE
     Dosage: 8MG, TWO FILMS DAILY
     Route: 060
     Dates: start: 2017

REACTIONS (6)
  - Wrong technique in product usage process [Recovered/Resolved]
  - Procedural pain [Unknown]
  - Metastases to lymph nodes [Recovered/Resolved]
  - Nausea [Unknown]
  - Intentional underdose [Recovered/Resolved]
  - Intraductal proliferative breast lesion [Recovered/Resolved]

NARRATIVE: CASE EVENT DATE: 2018
